FAERS Safety Report 20959361 (Version 3)
Quarter: 2022Q4

REPORT INFORMATION
  Report Type: Report from Study
  Country: US (occurrence: US)
  Receive Date: 20220614
  Receipt Date: 20221118
  Transmission Date: 20230113
  Serious: Yes (Other)
  Sender: FDA-Public Use
  Company Number: US-TAKEDA-2022TUS038790

PATIENT
  Sex: Male

DRUGS (2)
  1. MARIBAVIR [Suspect]
     Active Substance: MARIBAVIR
     Indication: Cytomegalovirus infection
     Dosage: 400 MILLIGRAM, BID
     Route: 048
     Dates: start: 20220406
  2. PREVYMIS [Suspect]
     Active Substance: LETERMOVIR
     Indication: Product used for unknown indication
     Dosage: UNK
     Route: 065

REACTIONS (5)
  - Pneumonia [Recovering/Resolving]
  - Fungal infection [Recovering/Resolving]
  - Bacterial infection [Recovering/Resolving]
  - Cytomegalovirus test positive [Unknown]
  - White blood cell count decreased [Unknown]
